FAERS Safety Report 19108613 (Version 1)
Quarter: 2021Q2

REPORT INFORMATION
  Report Type: Report from Study
  Country: FR (occurrence: FR)
  Receive Date: 20210408
  Receipt Date: 20210408
  Transmission Date: 20210717
  Serious: Yes (Death, Hospitalization)
  Sender: FDA-Public Use
  Company Number: FR-TEVA-2021-FR-1898118

PATIENT
  Age: 72 Year
  Sex: Male

DRUGS (2)
  1. VORICONAZOLE. [Suspect]
     Active Substance: VORICONAZOLE
     Indication: BRONCHOPULMONARY ASPERGILLOSIS
     Route: 065
     Dates: start: 2020, end: 2020
  2. TOCILIZUMAB. [Suspect]
     Active Substance: TOCILIZUMAB
     Indication: COVID-19
     Route: 065
     Dates: start: 2020, end: 2020

REACTIONS (2)
  - Off label use [Unknown]
  - Drug ineffective [Fatal]

NARRATIVE: CASE EVENT DATE: 2020
